FAERS Safety Report 6631642-0 (Version None)
Quarter: 2010Q1

REPORT INFORMATION
  Report Type: 
  Country: None (occurrence: None)
  Receive Date: 20100312
  Receipt Date: 20100302
  Transmission Date: 20100710
  Serious: Yes (Hospitalization)
  Sender: FDA-Public Use
  Company Number: FR-JNJFOC-20080803989

PATIENT
  Age: 44 Year
  Sex: Male
  Weight: 72 kg

DRUGS (7)
  1. REMICADE [Suspect]
     Indication: ANKYLOSING SPONDYLITIS
     Dosage: RECEIVED 2 INFUSIONS
     Route: 042
  2. FELDENE [Concomitant]
     Indication: MUSCULOSKELETAL PAIN
  3. IXPRIM [Concomitant]
     Indication: MUSCULOSKELETAL PAIN
  4. PARACETAMOL [Concomitant]
     Indication: MUSCULOSKELETAL PAIN
  5. TRAMADOL HCL [Concomitant]
  6. RIMIFON [Concomitant]
     Indication: PROPHYLAXIS
  7. RIFAMPIN [Concomitant]
     Indication: PROPHYLAXIS

REACTIONS (1)
  - PULMONARY ALVEOLAR HAEMORRHAGE [None]
